FAERS Safety Report 16633654 (Version 2)
Quarter: 2019Q3

REPORT INFORMATION
  Report Type: Report from Study
  Country: FR (occurrence: FR)
  Receive Date: 20190725
  Receipt Date: 20190731
  Transmission Date: 20191004
  Serious: Yes (Hospitalization)
  Sender: FDA-Public Use
  Company Number: PHHY2019FR056610

PATIENT
  Age: 25 Year
  Sex: Female

DRUGS (2)
  1. BYL719 [Suspect]
     Active Substance: ALPELISIB
     Indication: VASCULAR MALFORMATION
     Dosage: 250 MG, UNK
     Route: 048
     Dates: start: 20180810, end: 20181130
  2. BYL719 [Suspect]
     Active Substance: ALPELISIB
     Dosage: 150 MG, UNK
     Route: 065
     Dates: start: 20190128

REACTIONS (1)
  - Venous thrombosis [Recovered/Resolved]

NARRATIVE: CASE EVENT DATE: 20190218
